FAERS Safety Report 12780690 (Version 3)
Quarter: 2022Q1

REPORT INFORMATION
  Report Type: Spontaneous
  Country: US (occurrence: US)
  Receive Date: 20160926
  Receipt Date: 20220301
  Transmission Date: 20220424
  Serious: No
  Sender: FDA-Public Use
  Company Number: US-PFIZER INC-2016336786

PATIENT
  Age: 61 Year
  Sex: Male

DRUGS (3)
  1. RAPAMUNE [Suspect]
     Active Substance: SIROLIMUS
     Indication: Renal transplant
     Dosage: 2 DF, DAILY; 2 TABS ALTERNATING 1.5 AND 2 MG EVERY OTHER
     Route: 048
  2. RAPAMUNE [Suspect]
     Active Substance: SIROLIMUS
     Indication: Road traffic accident
     Dosage: 0.5 MG, 1X/DAY (0.5 MG, TAKE 1 ONCE A DAY)
  3. RAPAMUNE [Suspect]
     Active Substance: SIROLIMUS
     Dosage: 1 MG, 1X/DAY (1 MG, TAKE 1 ONCE A DAY)

REACTIONS (3)
  - Nasopharyngitis [Unknown]
  - Poor quality product administered [Unknown]
  - Product quality issue [Unknown]

NARRATIVE: CASE EVENT DATE: 20220201
